FAERS Safety Report 18303854 (Version 5)
Quarter: 2020Q4

REPORT INFORMATION
  Report Type: Report from Study
  Country: US (occurrence: US)
  Receive Date: 20200923
  Receipt Date: 20201120
  Transmission Date: 20210113
  Serious: Yes (Hospitalization, Other)
  Sender: FDA-Public Use
  Company Number: US-JNJFOC-20200918267

PATIENT
  Age: 59 Year
  Sex: Male
  Weight: 93.07 kg

DRUGS (5)
  1. VELETRI [Suspect]
     Active Substance: EPOPROSTENOL
     Route: 042
  2. VELETRI [Suspect]
     Active Substance: EPOPROSTENOL
     Indication: PULMONARY ARTERIAL HYPERTENSION
     Route: 042
  3. VELETRI [Suspect]
     Active Substance: EPOPROSTENOL
     Route: 042
  4. VELETRI [Suspect]
     Active Substance: EPOPROSTENOL
     Route: 042
  5. METOPROLOL. [Concomitant]
     Active Substance: METOPROLOL

REACTIONS (12)
  - Pain in jaw [Unknown]
  - Headache [Unknown]
  - Fall [Unknown]
  - Oxygen saturation decreased [Unknown]
  - Flushing [Unknown]
  - Head injury [Unknown]
  - Nausea [Unknown]
  - Dizziness [Unknown]
  - Loss of consciousness [Unknown]
  - Pulmonary arterial hypertension [Unknown]
  - Humerus fracture [Unknown]
  - Rash [Unknown]

NARRATIVE: CASE EVENT DATE: 20200905
